FAERS Safety Report 8154461-5 (Version None)
Quarter: 2012Q1

REPORT INFORMATION
  Report Type: 
  Country: None (occurrence: None)
  Receive Date: 20120207
  Receipt Date: 20120124
  Transmission Date: 20120608
  Serious: Yes (Death, Life-Threatening)
  Sender: FDA-Public Use
  Company Number: WAES 1112USA02841

PATIENT
  Age: 37 Year
  Sex: Male

DRUGS (3)
  1. POWD ANTIVENIN (ANTIVENIN (LATRODECTUS MACTANS)) 2.5 [Suspect]
     Indication: ARTHROPOD BITE
     Dosage: 1X/IV
     Route: 042
  2. ALBUTEROL [Concomitant]
  3. CYCLOBENZAPRINE HCL [Concomitant]

REACTIONS (11)
  - RENAL TUBULAR NECROSIS [None]
  - METABOLIC ACIDOSIS [None]
  - SUDDEN DEATH [None]
  - CARDIAC ARREST [None]
  - MYOCLONUS [None]
  - PUPIL FIXED [None]
  - HYPOTENSION [None]
  - BODY TEMPERATURE INCREASED [None]
  - ANAPHYLACTIC SHOCK [None]
  - PULMONARY EMBOLISM [None]
  - BLOOD GLUCOSE INCREASED [None]
